FAERS Safety Report 21983116 (Version 1)
Quarter: 2023Q1

REPORT INFORMATION
  Report Type: Spontaneous
  Country: US (occurrence: US)
  Receive Date: 20230213
  Receipt Date: 20230213
  Transmission Date: 20230418
  Serious: No
  Sender: FDA-Public Use
  Company Number: US-TEVA-2023-US-2851572

PATIENT
  Sex: Female

DRUGS (2)
  1. AUSTEDO [Suspect]
     Active Substance: DEUTETRABENAZINE
     Indication: Tardive dyskinesia
     Dosage: 6 MG
     Route: 065
  2. NITROUS OXIDE [Concomitant]
     Active Substance: NITROUS OXIDE
     Indication: Product used for unknown indication

REACTIONS (1)
  - Somnolence [Unknown]
